FAERS Safety Report 5282236-3 (Version None)
Quarter: 2007Q1

REPORT INFORMATION
  Report Type: 
  Country: None (occurrence: None)
  Receive Date: 20070330
  Receipt Date: 20070320
  Transmission Date: 20070707
  Serious: Yes (Other)
  Sender: FDA-Public Use
  Company Number: US-PFIZER INC-2007022393

PATIENT
  Sex: Female
  Weight: 59 kg

DRUGS (4)
  1. LIPITOR [Suspect]
     Indication: BLOOD CHOLESTEROL INCREASED
     Dosage: FREQ:DAILY
  2. OMEGA 3 [Concomitant]
  3. VITAMINS [Concomitant]
  4. CALCIUM [Concomitant]

REACTIONS (3)
  - AMNESIA [None]
  - DRUG DOSE OMISSION [None]
  - HEADACHE [None]
